FAERS Safety Report 6727917-7 (Version None)
Quarter: 2010Q2

REPORT INFORMATION
  Report Type: 
  Country: None (occurrence: None)
  Receive Date: 20100517
  Receipt Date: 20100513
  Transmission Date: 20101027
  Serious: Yes (Death, Life-Threatening)
  Sender: FDA-Public Use
  Company Number: HK-ASTRAZENECA-2010SE19820

PATIENT
  Age: 23 Year
  Sex: Female

DRUGS (1)
  1. XYLOCAINE [Suspect]
     Indication: LOCAL ANAESTHESIA
     Dosage: 20 CC ONCE
     Route: 065
     Dates: start: 20100430

REACTIONS (3)
  - CONVULSION [None]
  - DEATH [None]
  - DYSPNOEA [None]
